FAERS Safety Report 24802263 (Version 1)
Quarter: 2025Q1

REPORT INFORMATION
  Report Type: Spontaneous
  Country: US (occurrence: None)
  Receive Date: 20250103
  Receipt Date: 20250103
  Transmission Date: 20250408
  Serious: No
  Sender: REDHILL BIOPHARMA INC.
  Company Number: US-ARIS GLOBAL-RDH202404-000019

PATIENT

DRUGS (19)
  1. AEMCOLO [Suspect]
     Active Substance: RIFAMYCIN
     Indication: Tuberculosis
     Route: 065
  2. AEMCOLO [Suspect]
     Active Substance: RIFAMYCIN
     Route: 065
  3. AEMCOLO [Suspect]
     Active Substance: RIFAMYCIN
     Route: 065
  4. ISONIAZID [Concomitant]
     Active Substance: ISONIAZID
     Indication: Tuberculosis
     Route: 065
  5. RIFAMPIN [Concomitant]
     Active Substance: RIFAMPIN
     Indication: Tuberculosis
     Route: 065
  6. PYRAZINAMIDE [Concomitant]
     Active Substance: PYRAZINAMIDE
     Indication: Tuberculosis
     Route: 065
  7. ETHAMBUTOL [Concomitant]
     Active Substance: ETHAMBUTOL HYDROCHLORIDE
     Indication: Tuberculosis
     Route: 065
  8. RIFABUTIN [Concomitant]
     Active Substance: RIFABUTIN
     Indication: Tuberculosis
     Route: 065
  9. LEVOFLOXACIN [Concomitant]
     Active Substance: LEVOFLOXACIN
     Indication: Tuberculosis
     Route: 065
  10. STREPTOMYCIN [Concomitant]
     Active Substance: STREPTOMYCIN SULFATE
     Indication: Tuberculosis
     Route: 065
  11. MOXIFLOXACIN [Concomitant]
     Active Substance: MOXIFLOXACIN
     Indication: Tuberculosis
     Route: 065
  12. CYCLOSPORINE [Concomitant]
     Active Substance: CYCLOSPORINE
     Indication: Tuberculosis
     Route: 065
  13. CIPROFLOXACIN [Concomitant]
     Active Substance: CIPROFLOXACIN
     Indication: Tuberculosis
     Route: 065
  14. AMIKACIN [Concomitant]
     Active Substance: AMIKACIN
     Indication: Tuberculosis
     Route: 065
  15. ETHIONAMIDE [Concomitant]
     Active Substance: ETHIONAMIDE
     Indication: Tuberculosis
     Route: 065
  16. GATIFLOXACIN [Concomitant]
     Active Substance: GATIFLOXACIN
     Indication: Tuberculosis
     Route: 065
  17. CAPREOMYCIN [Concomitant]
     Active Substance: CAPREOMYCIN
     Indication: Tuberculosis
     Route: 065
  18. LINEZOLID [Concomitant]
     Active Substance: LINEZOLID
     Indication: Tuberculosis
     Route: 065
  19. KANAMYCIN [Concomitant]
     Active Substance: KANAMYCIN A SULFATE
     Indication: Tuberculosis
     Route: 065

REACTIONS (1)
  - Drug resistance [Unknown]
